FAERS Safety Report 9336988 (Version 3)
Quarter: 2014Q1

REPORT INFORMATION
  Report Type: Report from Study
  Country: US (occurrence: US)
  Receive Date: 20130607
  Receipt Date: 20140228
  Transmission Date: 20141002
  Serious: Yes (Hospitalization, Other)
  Sender: FDA-Public Use
  Company Number: PHEH2013US012346

PATIENT
  Sex: Female

DRUGS (9)
  1. GILENYA [Suspect]
     Indication: MULTIPLE SCLEROSIS
     Dosage: 0.5 MG, QD
     Route: 048
     Dates: start: 20130604, end: 20140107
  2. AMPYRA [Concomitant]
  3. TROSPIUM [Concomitant]
  4. MAGNESIUM [Concomitant]
  5. FISH OIL [Concomitant]
  6. VITAMIN B12 [Concomitant]
  7. BACLOFEN [Concomitant]
  8. LOVASTATIN [Concomitant]
  9. LISINOPRIL [Concomitant]

REACTIONS (11)
  - Kidney infection [Recovering/Resolving]
  - Urinary tract infection [Recovering/Resolving]
  - Pyrexia [Recovering/Resolving]
  - Blood pressure decreased [Recovering/Resolving]
  - Staphylococcal infection [Recovering/Resolving]
  - Feeling abnormal [Recovering/Resolving]
  - Fatigue [Unknown]
  - Gait disturbance [Unknown]
  - Malaise [Recovering/Resolving]
  - Asthenia [Unknown]
  - Nasopharyngitis [Recovering/Resolving]
